FAERS Safety Report 4264268-7 (Version None)
Quarter: 2004Q1

REPORT INFORMATION
  Report Type: 
  Country: None (occurrence: None)
  Receive Date: 20040102
  Receipt Date: 20031224
  Transmission Date: 20041129
  Serious: Yes (Death, Hospitalization)
  Sender: FDA-Public Use
  Company Number: 163-20785-03110351

PATIENT
  Age: 59 Year
  Sex: Male

DRUGS (7)
  1. THALOMID [Suspect]
     Indication: RENAL CELL CARCINOMA STAGE UNSPECIFIED
     Dosage: 200 MG, ORAL
     Route: 048
     Dates: start: 20030529, end: 20031101
  2. FENTANYL (FENTANYL) (POULTICE OR PATCH) [Concomitant]
  3. AMBIEN [Concomitant]
  4. SENOKOT [Concomitant]
  5. ATIVAN [Concomitant]
  6. PAIN MEDICATION [Concomitant]
  7. PROTONIX [Concomitant]

REACTIONS (6)
  - FALL [None]
  - MALIGNANT NEOPLASM PROGRESSION [None]
  - METASTASES TO BONE [None]
  - METASTASES TO CENTRAL NERVOUS SYSTEM [None]
  - RENAL CELL CARCINOMA STAGE UNSPECIFIED [None]
  - TIBIA FRACTURE [None]
